FAERS Safety Report 7501869-4 (Version None)
Quarter: 2011Q2

REPORT INFORMATION
  Report Type: 
  Country: None (occurrence: None)
  Receive Date: 20110525
  Receipt Date: 20110513
  Transmission Date: 20111010
  Serious: Yes (Hospitalization, Other)
  Sender: FDA-Public Use
  Company Number: US-BAYER-201020845NA

PATIENT
  Age: 28 Year
  Sex: Female
  Weight: 113.38 kg

DRUGS (4)
  1. SYNTHROID [Concomitant]
     Dosage: UNK
     Dates: start: 20060101
  2. PHENTERMINE [Concomitant]
     Dosage: ??-???2006
  3. LEVOXYL [Concomitant]
     Dosage: 2.5 ?G, QD
  4. YAZ [Suspect]
     Indication: PRODUCT USED FOR UNKNOWN INDICATION
     Dosage: UNK UNK, UNK
     Route: 048
     Dates: start: 20070301, end: 20080801

REACTIONS (1)
  - CHOLECYSTITIS CHRONIC [None]
